FAERS Safety Report 9399815 (Version 1)
Quarter: 2013Q3

REPORT INFORMATION
  Report Type: Report from Study
  Country: MX (occurrence: MX)
  Receive Date: 20130715
  Receipt Date: 20130715
  Transmission Date: 20140515
  Serious: Yes (Other)
  Sender: FDA-Public Use
  Company Number: PHHY2012MX029811

PATIENT
  Age: 11 Year
  Sex: Female

DRUGS (3)
  1. TRILEPTAL [Suspect]
     Indication: EPILEPSY
     Dosage: 12 DRP, QD
     Route: 048
     Dates: start: 20111017
  2. TRILEPTAL [Suspect]
     Indication: PSYCHOMOTOR HYPERACTIVITY
  3. TRILEPTAL [Suspect]
     Indication: OFF LABEL USE

REACTIONS (2)
  - Intentional self-injury [Unknown]
  - Abnormal behaviour [Unknown]
